FAERS Safety Report 8083156-1 (Version None)
Quarter: 2012Q1

REPORT INFORMATION
  Report Type: 
  Country: None (occurrence: None)
  Receive Date: 20120127
  Receipt Date: 20110214
  Transmission Date: 20120608
  Serious: No
  Sender: FDA-Public Use
  Company Number: US-ABBOTT-11P-163-0705259-00

PATIENT
  Age: 69 Year
  Sex: Female

DRUGS (4)
  1. FORTEO [Concomitant]
     Indication: DRUG THERAPY
     Dosage: DAILY
  2. HUMIRA [Suspect]
     Indication: CROHN'S DISEASE
     Dates: start: 20110204
  3. METOPROLOL TARTRATE [Concomitant]
     Indication: HEART RATE IRREGULAR
     Dosage: 25MG DAILY
     Route: 048
  4. FORTEO [Concomitant]
     Indication: BONE DENSITY ABNORMAL

REACTIONS (4)
  - INJECTION SITE VESICLES [None]
  - ABDOMINAL PAIN [None]
  - INJECTION SITE PUSTULE [None]
  - INJECTION SITE ERYTHEMA [None]
